FAERS Safety Report 6259545-4 (Version None)
Quarter: 2009Q3

REPORT INFORMATION
  Report Type: 
  Country: None (occurrence: None)
  Receive Date: 20090708
  Receipt Date: 20090625
  Transmission Date: 20100115
  Serious: Yes (Hospitalization)
  Sender: FDA-Public Use
  Company Number: FR-PFIZER INC-2009232464

PATIENT
  Age: 72 Year

DRUGS (1)
  1. LYRICA [Suspect]
     Indication: SCIATICA
     Dosage: UNK
     Dates: start: 20090301

REACTIONS (6)
  - ATRIAL FIBRILLATION [None]
  - DRUG INEFFECTIVE [None]
  - HYPERHIDROSIS [None]
  - MALAISE [None]
  - PALPITATIONS [None]
  - VERTIGO [None]
